FAERS Safety Report 6379985-2 (Version None)
Quarter: 2009Q3

REPORT INFORMATION
  Report Type: 
  Country: None (occurrence: None)
  Receive Date: 20090928
  Receipt Date: 20090917
  Transmission Date: 20100115
  Serious: No
  Sender: FDA-Public Use
  Company Number: US-B.I. PHARMACEUTICALS,INC./RIDGEFIELD-2009-BP-08848BP

PATIENT
  Sex: Female

DRUGS (7)
  1. SPIRIVA [Suspect]
     Indication: CHRONIC OBSTRUCTIVE PULMONARY DISEASE
     Dates: start: 20050101
  2. ADVAIR DISKUS 100/50 [Concomitant]
     Indication: DYSPNOEA
  3. ALBUTEROL [Concomitant]
     Indication: DYSPNOEA
  4. ATROVENT [Concomitant]
     Indication: DYSPNOEA
  5. SYNTHROID [Concomitant]
  6. ALEVE [Concomitant]
     Indication: ARTHRITIS
  7. BENADRYL [Concomitant]

REACTIONS (3)
  - FEELING ABNORMAL [None]
  - VISION BLURRED [None]
  - VISUAL IMPAIRMENT [None]
